FAERS Safety Report 5383090-1 (Version None)
Quarter: 2007Q3

REPORT INFORMATION
  Report Type: 
  Country: None (occurrence: None)
  Receive Date: 20070705
  Receipt Date: 20070619
  Transmission Date: 20080115
  Serious: Yes (Hospitalization)
  Sender: FDA-Public Use
  Company Number: 2007RR-08159

PATIENT
  Age: 73 Year
  Sex: Male

DRUGS (9)
  1. CO-DYDRAMOL ORAL (ACETAMINOPHEN/PARACETAMOL, DIHYDROCODEINE) [Suspect]
     Indication: PAIN
     Dosage: 2 DF, QID, ORAL
     Route: 048
     Dates: end: 20070525
  2. AMIODARONE HCL [Concomitant]
  3. ATORVASTATIN CALCIUM [Concomitant]
  4. CITALOPRAM HYDROBROMIDE [Concomitant]
  5. ENALAPRIL MALEATE (ENALAPRIL) [Concomitant]
  6. FUROSEMIDE [Concomitant]
  7. GLYCERYL TRINITRATE [Concomitant]
  8. WARFARIN SODIUM [Concomitant]
  9. ZOPICLONE (ZOPICLONE) [Concomitant]

REACTIONS (1)
  - CONSTIPATION [None]
